FAERS Safety Report 7569560-6 (Version None)
Quarter: 2011Q2

REPORT INFORMATION
  Report Type: 
  Country: None (occurrence: None)
  Receive Date: 20110623
  Receipt Date: 20110623
  Transmission Date: 20111010
  Serious: Yes (Hospitalization)
  Sender: FDA-Public Use
  Company Number: None

PATIENT
  Age: 27 Year
  Sex: Male

DRUGS (1)
  1. ALCOHOL PREP PADS [Suspect]

REACTIONS (3)
  - BACILLUS INFECTION [None]
  - PRODUCT CONTAMINATION MICROBIAL [None]
  - BACTERAEMIA [None]
